FAERS Safety Report 5466718-7 (Version None)
Quarter: 2007Q3

REPORT INFORMATION
  Report Type: 
  Country: None (occurrence: None)
  Receive Date: 20070920
  Receipt Date: 20070905
  Transmission Date: 20080115
  Serious: Yes (Congenital Anomaly)
  Sender: FDA-Public Use
  Company Number: 2007S1000214

PATIENT
  Weight: 3.59 kg

DRUGS (1)
  1. ACITRETIN [Suspect]
     Dosage: ;TRPL
     Route: 064

REACTIONS (3)
  - DRUG EXPOSURE BEFORE PREGNANCY [None]
  - MENINGOCELE [None]
  - PREGNANCY [None]
